FAERS Safety Report 5593973-5 (Version None)
Quarter: 2008Q1

REPORT INFORMATION
  Report Type: 
  Country: None (occurrence: None)
  Receive Date: 20080114
  Receipt Date: 20071227
  Transmission Date: 20080703
  Serious: Yes (Hospitalization)
  Sender: FDA-Public Use
  Company Number: 2006JP001782

PATIENT
  Age: 73 Year
  Sex: Female

DRUGS (6)
  1. TACROLIMUS [Suspect]
     Indication: RHEUMATOID ARTHRITIS
     Dosage: 3 MG, UID/QD, ORAL; 2 MG, UID/QD, ORAL
     Route: 048
     Dates: start: 20050824, end: 20060801
  2. TACROLIMUS [Suspect]
     Indication: RHEUMATOID ARTHRITIS
     Dosage: 3 MG, UID/QD, ORAL; 2 MG, UID/QD, ORAL
     Route: 048
     Dates: start: 20070731
  3. VOLTAREN [Suspect]
     Indication: RHEUMATOID ARTHRITIS
     Dosage: 50 MG, /D, ORAL
     Route: 048
     Dates: end: 20070827
  4. SUCRALFATE [Concomitant]
  5. PROMAC (POLAPREZINC) [Concomitant]
  6. ZOLPIDEM TARTRATE [Concomitant]

REACTIONS (9)
  - ANAEMIA [None]
  - ARTERIOSCLEROSIS [None]
  - DENTAL CARIES [None]
  - INSOMNIA [None]
  - LYMPHOMA [None]
  - PERIPHERAL ARTERY ANEURYSM [None]
  - REFLUX OESOPHAGITIS [None]
  - TOOTH FRACTURE [None]
  - VASCULAR GRAFT [None]
